FAERS Safety Report 4678147-4 (Version None)
Quarter: 2005Q2

REPORT INFORMATION
  Report Type: 
  Country: None (occurrence: None)
  Receive Date: 20050527
  Receipt Date: 20050512
  Transmission Date: 20051028
  Serious: Yes (Hospitalization)
  Sender: FDA-Public Use
  Company Number: 214489

PATIENT
  Sex: Female

DRUGS (1)
  1. MABTHERA (RITUXIMAB) CONC FOR SOLUTION FOR INFUSION [Suspect]
     Indication: B-CELL LYMPHOMA
     Dates: start: 20050512

REACTIONS (6)
  - BLOOD LACTIC ACID INCREASED [None]
  - BRONCHOSPASM [None]
  - COMA [None]
  - DYSPNOEA [None]
  - LEUKOCYTOSIS [None]
  - PUPILLARY LIGHT REFLEX TESTS ABNORMAL [None]
